FAERS Safety Report 25995669 (Version 1)
Quarter: 2025Q4

REPORT INFORMATION
  Report Type: Spontaneous
  Country: EU (occurrence: EU)
  Receive Date: 20251104
  Receipt Date: 20251104
  Transmission Date: 20260117
  Serious: Yes (Hospitalization)
  Sender: MYLAN
  Company Number: None

PATIENT
  Age: 80 Year
  Sex: Male
  Weight: 58 kg

DRUGS (12)
  1. PANTOPRAZOLE [Suspect]
     Active Substance: PANTOPRAZOLE
     Indication: Product used for unknown indication
     Dosage: 20 MILLIGRAM, QD
     Dates: end: 20241220
  2. PANTOPRAZOLE [Suspect]
     Active Substance: PANTOPRAZOLE
     Dosage: 20 MILLIGRAM, QD
     Route: 048
     Dates: end: 20241220
  3. PANTOPRAZOLE [Suspect]
     Active Substance: PANTOPRAZOLE
     Dosage: 20 MILLIGRAM, QD
     Route: 048
     Dates: end: 20241220
  4. PANTOPRAZOLE [Suspect]
     Active Substance: PANTOPRAZOLE
     Dosage: 20 MILLIGRAM, QD
     Dates: end: 20241220
  5. ACETAMINOPHEN\OPIUM [Suspect]
     Active Substance: ACETAMINOPHEN\OPIUM
     Indication: Arthralgia
     Dosage: 6 DOSAGE FORM, QD
     Dates: start: 20241203, end: 20241224
  6. ACETAMINOPHEN\OPIUM [Suspect]
     Active Substance: ACETAMINOPHEN\OPIUM
     Dosage: 6 DOSAGE FORM, QD
     Route: 048
     Dates: start: 20241203, end: 20241224
  7. ACETAMINOPHEN\OPIUM [Suspect]
     Active Substance: ACETAMINOPHEN\OPIUM
     Dosage: 6 DOSAGE FORM, QD
     Route: 048
     Dates: start: 20241203, end: 20241224
  8. ACETAMINOPHEN\OPIUM [Suspect]
     Active Substance: ACETAMINOPHEN\OPIUM
     Dosage: 6 DOSAGE FORM, QD
     Dates: start: 20241203, end: 20241224
  9. KEYTRUDA [Suspect]
     Active Substance: PEMBROLIZUMAB
     Indication: Metastatic malignant melanoma
     Dosage: 1 DOSAGE FORM, CYCLE, SOLUTION TO BE DILUTED FOR INFUSION
     Dates: start: 20241203, end: 20241203
  10. KEYTRUDA [Suspect]
     Active Substance: PEMBROLIZUMAB
     Dosage: 1 DOSAGE FORM, CYCLE, SOLUTION TO BE DILUTED FOR INFUSION
     Route: 042
     Dates: start: 20241203, end: 20241203
  11. KEYTRUDA [Suspect]
     Active Substance: PEMBROLIZUMAB
     Dosage: 1 DOSAGE FORM, CYCLE, SOLUTION TO BE DILUTED FOR INFUSION
     Route: 042
     Dates: start: 20241203, end: 20241203
  12. KEYTRUDA [Suspect]
     Active Substance: PEMBROLIZUMAB
     Dosage: 1 DOSAGE FORM, CYCLE, SOLUTION TO BE DILUTED FOR INFUSION
     Dates: start: 20241203, end: 20241203

REACTIONS (3)
  - Polymyalgia rheumatica [Not Recovered/Not Resolved]
  - Condition aggravated [Not Recovered/Not Resolved]
  - Hepatitis cholestatic [Recovered/Resolved]

NARRATIVE: CASE EVENT DATE: 20241204
